FAERS Safety Report 25031117 (Version 1)
Quarter: 2025Q1

REPORT INFORMATION
  Report Type: Spontaneous
  Country: US (occurrence: None)
  Receive Date: 20250228
  Receipt Date: 20250228
  Transmission Date: 20250408
  Serious: Yes (Disabling, Other)
  Sender: FDA-CTU
  Company Number: None

PATIENT
  Age: 66 Year
  Sex: Male
  Weight: 63 kg

DRUGS (8)
  1. AIMOVIG [Suspect]
     Active Substance: ERENUMAB-AOOE
     Indication: Migraine
     Route: 030
     Dates: start: 20190228, end: 20250228
  2. SUMATRIPTAN [Concomitant]
     Active Substance: SUMATRIPTAN
  3. UBRELVY [Concomitant]
     Active Substance: UBROGEPANT
  4. CHONDROITIN [Concomitant]
     Active Substance: CHONDROITIN
  5. MAGNESIUM [Concomitant]
     Active Substance: MAGNESIUM
  6. VITAMIN C [Concomitant]
     Active Substance: ASCORBIC ACID
  7. ALPHA LIPOIC ACID [Concomitant]
     Active Substance: .ALPHA.-LIPOIC ACID
  8. VITAMIN B COMPLEX [Concomitant]
     Active Substance: CYANOCOBALAMIN\DEXPANTHENOL\NIACINAMIDE\PYRIDOXINE HYDROCHLORIDE\RIBOFLAVIN 5^-PHOSPHATE SODIUM\THIA

REACTIONS (9)
  - Pruritus [None]
  - Post procedural complication [None]
  - Rash macular [None]
  - Pruritus [None]
  - Vitreous floaters [None]
  - Tooth infection [None]
  - Product quality issue [None]
  - Product storage error [None]
  - Therapy cessation [None]

NARRATIVE: CASE EVENT DATE: 20250113
